FAERS Safety Report 7992228-9 (Version None)
Quarter: 2011Q4

REPORT INFORMATION
  Report Type: 
  Country: None (occurrence: None)
  Receive Date: 20111219
  Receipt Date: 20111024
  Transmission Date: 20120403
  Serious: Yes (Other)
  Sender: FDA-Public Use
  Company Number: US-PURDUE-USA-2011-0079768

PATIENT
  Sex: Male

DRUGS (2)
  1. OXYCONTIN [Suspect]
     Indication: BACK PAIN
     Dosage: UNK
     Dates: start: 20071004
  2. OXYCONTIN [Suspect]

REACTIONS (4)
  - DEPRESSION [None]
  - SUICIDAL IDEATION [None]
  - ABDOMINAL PAIN UPPER [None]
  - ERECTILE DYSFUNCTION [None]
